FAERS Safety Report 5849846-3 (Version None)
Quarter: 2008Q3

REPORT INFORMATION
  Report Type: 
  Country: None (occurrence: None)
  Receive Date: 20080815
  Receipt Date: 20080801
  Transmission Date: 20090109
  Serious: Yes (Hospitalization)
  Sender: FDA-Public Use
  Company Number: 2008-181496-NL

PATIENT
  Age: 7 Year
  Sex: Male

DRUGS (4)
  1. ROCURONIUM BROMIDE [Suspect]
     Indication: HYPOTONIA
     Dosage: INTRAVENOUS (NOS)
     Route: 042
     Dates: start: 20080730, end: 20080730
  2. PROPOFOL [Suspect]
     Dosage: INTRAVENOUS (NOS)
     Route: 042
     Dates: start: 20080730, end: 20080730
  3. SEVOFLURANE [Suspect]
     Dosage: RESPIRATORY (INHALATION)
     Route: 055
     Dates: start: 20080730, end: 20080730
  4. SODIUM FLUORIDE [Suspect]
     Dates: start: 20080730, end: 20080730

REACTIONS (1)
  - LARYNGEAL OEDEMA [None]
